FAERS Safety Report 8813374 (Version 1)
Quarter: 2012Q4

REPORT INFORMATION
  Report Type: 
  Country: US (occurrence: US)
  Receive Date: 20120927
  Receipt Date: 20120927
  Transmission Date: 20130627
  Serious: No
  Sender: FDA-Public Use
  Company Number: US-AMGEN-USASP2012051331

PATIENT
  Age: 82 Year
  Sex: Female

DRUGS (21)
  1. PROLIA [Suspect]
     Indication: OSTEOPOROSIS POSTMENOPAUSAL
     Dosage: UNK
  2. VITAMIN D /00107901/ [Concomitant]
     Dosage: UNK
  3. LEVODOPA/CARBIDOPA [Concomitant]
  4. AMITRIPTYLINE [Concomitant]
  5. AMIODARONE [Concomitant]
  6. SIMVASTATIN [Concomitant]
  7. PRIMIDONE [Concomitant]
  8. METOPROLOL [Concomitant]
  9. SPIRONOLACTONE [Concomitant]
  10. LOSARTAN [Concomitant]
  11. ASPIRIN [Concomitant]
  12. METAMUCIL                          /00029101/ [Concomitant]
  13. ALPRAZOLAM [Concomitant]
  14. NITROGLYCERIN [Concomitant]
  15. FUROSEMIDE [Concomitant]
  16. WARFARIN [Concomitant]
  17. OCUVITE                            /01053801/ [Concomitant]
  18. CALCIUM CITRATE [Concomitant]
  19. MULTIVITAMIN                       /00097801/ [Concomitant]
  20. STOOL SOFTENER [Concomitant]
  21. PROBIOTICS [Concomitant]

REACTIONS (1)
  - Back pain [Not Recovered/Not Resolved]
